FAERS Safety Report 10646624 (Version 8)
Quarter: 2019Q2

REPORT INFORMATION
  Report Type: Spontaneous
  Country: US (occurrence: US)
  Receive Date: 20141211
  Receipt Date: 20190625
  Transmission Date: 20190711
  Serious: Yes (Other)
  Sender: FDA-Public Use
  Company Number: US-PFIZER INC-2014340545

PATIENT
  Age: 71 Year
  Sex: Female
  Weight: 72.56 kg

DRUGS (19)
  1. DILANTIN [Suspect]
     Active Substance: PHENYTOIN
     Indication: EPILEPSY
     Dosage: 100 MG, 2X/DAY (QHS)
     Route: 048
     Dates: start: 1961
  2. ENALAPRIL [Concomitant]
     Active Substance: ENALAPRIL
     Dosage: 25 MG, DAILY
     Dates: start: 1992
  3. ISOSORBIDE MONONITRATE. [Concomitant]
     Active Substance: ISOSORBIDE MONONITRATE
     Dosage: 30 MG, 1X/DAY
     Route: 048
  4. LEVOTHROID [Concomitant]
     Active Substance: LEVOTHYROXINE SODIUM
     Indication: THYROID DISORDER
     Dosage: 200 ?G, DAILY
  5. ETODOLAC. [Concomitant]
     Active Substance: ETODOLAC
     Dosage: 400 MG, 2X/DAY
     Route: 048
  6. ASPIRIN. [Concomitant]
     Active Substance: ASPIRIN
     Dosage: 325 MG, DAILY
     Route: 048
  7. DILANTIN [Suspect]
     Active Substance: PHENYTOIN
     Dosage: 3 - 4 DF, 1X/DAY (SHE HAS BEEN TAKING FOUR A DAY, SOMETIMES SHE ONLY NEEDS THREE CAPSULES A DAY)
     Route: 048
  8. DILANTIN [Suspect]
     Active Substance: PHENYTOIN
     Dosage: 300 MG, DAILY(2 IN THE MORNING AND 1 AT NIGHT)
  9. VYTORIN [Concomitant]
     Active Substance: EZETIMIBE\SIMVASTATIN
     Dosage: 10-40MG, DAILY
     Route: 048
     Dates: start: 1989
  10. MOBIC [Concomitant]
     Active Substance: MELOXICAM
     Dosage: 15 MG, 1X/DAY
     Route: 048
  11. LEVOTHYROXINE. [Concomitant]
     Active Substance: LEVOTHYROXINE
     Indication: THYROID DISORDER
     Dosage: 200 MG, DAILY
     Route: 048
  12. DILANTIN [Suspect]
     Active Substance: PHENYTOIN
     Indication: LOSS OF CONSCIOUSNESS
     Dosage: 200 MG, 2X/DAY
     Route: 048
  13. PRIMIDONE. [Concomitant]
     Active Substance: PRIMIDONE
     Dosage: 250 MG, 1X/DAY
     Route: 048
  14. ISOSORBIDE MONONITRATE. [Concomitant]
     Active Substance: ISOSORBIDE MONONITRATE
     Dosage: 30 MG, DAILY
     Dates: start: 1992
  15. EQUATE ASPIRIN [Concomitant]
     Active Substance: ASPIRIN
     Dosage: 325 MG, UNK
     Dates: start: 1992
  16. DILANTIN [Suspect]
     Active Substance: PHENYTOIN
     Indication: FALL
     Dosage: 3 DF, 4X/DAY; [TAKES 3 DILANTIN FOUR TIMES DAILY INSTEAD OF THREE ]
     Route: 048
  17. PRIMIDONE. [Concomitant]
     Active Substance: PRIMIDONE
     Indication: LOSS OF CONSCIOUSNESS
     Dosage: 250 MG, DAILY
     Route: 048
     Dates: start: 1961
  18. VYTORIN [Concomitant]
     Active Substance: EZETIMIBE\SIMVASTATIN
     Dosage: UNK, 1X/DAY
  19. ENALAPRIL [Concomitant]
     Active Substance: ENALAPRIL
     Dosage: 2.5 MG, 1X/DAY
     Route: 048

REACTIONS (9)
  - Body height decreased [Unknown]
  - Drug ineffective [Unknown]
  - Malaise [Unknown]
  - Weight decreased [Unknown]
  - Loss of consciousness [Unknown]
  - Road traffic accident [Unknown]
  - Feeling abnormal [Unknown]
  - Intentional overdose [Unknown]
  - Cerebral disorder [Unknown]
